FAERS Safety Report 17941008 (Version 1)
Quarter: 2020Q2

REPORT INFORMATION
  Report Type: Spontaneous
  Country: US (occurrence: US)
  Receive Date: 20200624
  Receipt Date: 20200624
  Transmission Date: 20200714
  Serious: No
  Sender: FDA-Public Use
  Company Number: US-009507513-2006USA006405

PATIENT
  Sex: Male

DRUGS (4)
  1. EZETIMIBE. [Suspect]
     Active Substance: EZETIMIBE
  2. ZETIA [Suspect]
     Active Substance: EZETIMIBE
  3. LOVAZA [Suspect]
     Active Substance: OMEGA-3-ACID ETHYL ESTERS
  4. OMEGA-3 ACID ETHYL ESTERS [Suspect]
     Active Substance: OMEGA-3-ACID ETHYL ESTERS

REACTIONS (2)
  - Vomiting [Unknown]
  - Abdominal discomfort [Unknown]
